FAERS Safety Report 6929919-4 (Version None)
Quarter: 2010Q3

REPORT INFORMATION
  Report Type: 
  Country: None (occurrence: None)
  Receive Date: 20100817
  Receipt Date: 20100817
  Transmission Date: 20110219
  Serious: Yes (Other)
  Sender: FDA-Public Use
  Company Number: None

PATIENT
  Age: 53 Year
  Sex: Female
  Weight: 54.4316 kg

DRUGS (1)
  1. BENADRYL [Suspect]
     Indication: MIGRAINE
     Dosage: 50 MG X1 IV
     Route: 042
     Dates: start: 20100722

REACTIONS (2)
  - DYSARTHRIA [None]
  - LOCKED-IN SYNDROME [None]
